FAERS Safety Report 5595561-3 (Version None)
Quarter: 2008Q1

REPORT INFORMATION
  Report Type: 
  Country: None (occurrence: None)
  Receive Date: 20080116
  Receipt Date: 20080116
  Transmission Date: 20080703
  Serious: Yes (Hospitalization)
  Sender: FDA-Public Use
  Company Number: None

PATIENT
  Age: 74 Year
  Sex: Male
  Weight: 86.18 kg

DRUGS (2)
  1. DILTIAZEM HCL [Suspect]
     Indication: CARDIOVASCULAR DISORDER
     Dosage: 240MG EVERY DAY PO
     Route: 048
     Dates: start: 20070825, end: 20071120
  2. DILTIAZEM HCL [Suspect]
     Indication: SURGERY
     Dosage: 240MG EVERY DAY PO
     Route: 048
     Dates: start: 20070825, end: 20071120

REACTIONS (4)
  - BRADYCARDIA [None]
  - PALPITATIONS [None]
  - PRESYNCOPE [None]
  - SINUS BRADYCARDIA [None]
